FAERS Safety Report 14947441 (Version 2)
Quarter: 2018Q3

REPORT INFORMATION
  Report Type: Spontaneous
  Country: US (occurrence: US)
  Receive Date: 20180529
  Receipt Date: 20180702
  Transmission Date: 20181010
  Serious: Yes (Death, Hospitalization)
  Sender: FDA-Public Use
  Company Number: US-TAIHO ONCOLOGY INC-EU-2018-00660

PATIENT
  Age: 64 Year
  Sex: Female

DRUGS (1)
  1. LONSURF [Suspect]
     Active Substance: TIPIRACIL HYDROCHLORIDE\TRIFLURIDINE
     Indication: COLON CANCER
     Route: 048
     Dates: start: 20180105

REACTIONS (4)
  - Abdominal pain [Unknown]
  - Blood bilirubin increased [Unknown]
  - Liver function test increased [Unknown]
  - Disease progression [Fatal]

NARRATIVE: CASE EVENT DATE: 2018
